FAERS Safety Report 7080577-0 (Version None)
Quarter: 2010Q4

REPORT INFORMATION
  Report Type: 
  Country: None (occurrence: None)
  Receive Date: 20101103
  Receipt Date: 20101021
  Transmission Date: 20110411
  Serious: Yes (Other)
  Sender: FDA-Public Use
  Company Number: US-ELI_LILLY_AND_COMPANY-US201007004464

PATIENT
  Sex: Female

DRUGS (16)
  1. FORTEO [Suspect]
     Indication: OSTEOPOROSIS
     Dosage: 20 UG, DAILY (1/D)
  2. FORTEO [Suspect]
     Dosage: 20 UG, DAILY (1/D)
  3. FORTEO [Suspect]
     Dosage: 20 UG, DAILY (1/D)
  4. XANAX [Concomitant]
  5. VERAPAMIL [Concomitant]
  6. TRAMADOL HCL [Concomitant]
  7. NEXIUM [Concomitant]
  8. ALLOPURINOL [Concomitant]
  9. HYDROCHLOROTHIAZIDE [Concomitant]
  10. LIPITOR [Concomitant]
  11. GABAPENTIN [Concomitant]
  12. CALTRATE D                         /00944201/ [Concomitant]
  13. FORTICAL /00371903/ [Concomitant]
  14. GLUCOSAMINE + CHONDROITIN [Concomitant]
  15. MOBIC [Concomitant]
  16. VITAMIN D3 [Concomitant]
     Dosage: UNK, WEEKLY (1/W)

REACTIONS (7)
  - ALOPECIA [None]
  - BALANCE DISORDER [None]
  - BENIGN NEOPLASM OF SKIN [None]
  - DIZZINESS [None]
  - INJECTION SITE HAEMATOMA [None]
  - OSTEOARTHRITIS [None]
  - SKIN CANCER [None]
